FAERS Safety Report 21035281 (Version 2)
Quarter: 2022Q3

REPORT INFORMATION
  Report Type: Spontaneous
  Country: US (occurrence: US)
  Receive Date: 20220701
  Receipt Date: 20220929
  Transmission Date: 20221026
  Serious: Yes (Hospitalization, Other)
  Sender: FDA-Public Use
  Company Number: US-BRISTOL-MYERS SQUIBB COMPANY-2022-064924

PATIENT
  Age: 67 Year
  Sex: Female
  Weight: 127 kg

DRUGS (2)
  1. REVLIMID [Suspect]
     Active Substance: LENALIDOMIDE
     Indication: Plasma cell myeloma
     Dosage: D 1-21 Q 28 DAY
     Route: 048
     Dates: start: 20200318
  2. REVLIMID [Suspect]
     Active Substance: LENALIDOMIDE
     Dosage: DAY 1-21 Q 28
     Route: 048
     Dates: start: 20200318

REACTIONS (2)
  - Hip fracture [Not Recovered/Not Resolved]
  - Plasma cell myeloma [Not Recovered/Not Resolved]
